FAERS Safety Report 5613537-4 (Version None)
Quarter: 2008Q1

REPORT INFORMATION
  Report Type: 
  Country: None (occurrence: None)
  Receive Date: 20080129
  Receipt Date: 20080114
  Transmission Date: 20080703
  Serious: Yes (Death)
  Sender: FDA-Public Use
  Company Number: 2008S1000031

PATIENT
  Age: 53 Year
  Sex: Female

DRUGS (3)
  1. ROXANOL [Suspect]
     Dosage: PO
     Route: 048
     Dates: end: 20060101
  2. BUTALBITAL/ASPIRIN/CAFEINE [Suspect]
     Dosage: PO
     Route: 048
     Dates: end: 20060101
  3. HYDROCHLOROTHIAZIDE [Suspect]
     Dosage: PO
     Route: 048
     Dates: end: 20060101

REACTIONS (1)
  - COMPLETED SUICIDE [None]
